FAERS Safety Report 23602773 (Version 3)
Quarter: 2024Q1

REPORT INFORMATION
  Report Type: Spontaneous
  Country: US (occurrence: US)
  Receive Date: 20240306
  Receipt Date: 20240325
  Transmission Date: 20240410
  Serious: Yes (Other)
  Sender: FDA-Public Use
  Company Number: US-APELLIS PHARMACEUTICALS-APL-2024-004177

PATIENT
  Age: 87 Year
  Sex: Female

DRUGS (3)
  1. SYFOVRE [Suspect]
     Active Substance: PEGCETACOPLAN
     Indication: Dry age-related macular degeneration
     Dosage: 15 MILLIGRAM EVERY 6-8 WEEKS OS
     Dates: start: 20240103, end: 20240103
  2. VITAMINS NOS [Concomitant]
     Active Substance: VITAMINS
     Indication: Product used for unknown indication
  3. CLARITIN EYE [Concomitant]
     Indication: Product used for unknown indication
     Dosage: 1 GTT DROPS, QD

REACTIONS (15)
  - Blindness [Not Recovered/Not Resolved]
  - Ocular hypertension [Unknown]
  - Cytomegalovirus chorioretinitis [Unknown]
  - Retinal fibrosis [Unknown]
  - Vitreous haemorrhage [Unknown]
  - Hypopyon [Recovered/Resolved]
  - Retinal vasculitis [Unknown]
  - Endophthalmitis [Recovering/Resolving]
  - Eye pain [Unknown]
  - Anterior chamber cell [Unknown]
  - Staphylococcus test positive [Unknown]
  - Vitreous fibrin [Unknown]
  - Ocular hyperaemia [Unknown]
  - Conjunctival oedema [Unknown]
  - Eye haemorrhage [Unknown]

NARRATIVE: CASE EVENT DATE: 20240118
